FAERS Safety Report 15969203 (Version 5)
Quarter: 2020Q1

REPORT INFORMATION
  Report Type: Spontaneous
  Country: US (occurrence: US)
  Receive Date: 20190215
  Receipt Date: 20200316
  Transmission Date: 20200409
  Serious: Yes (Other)
  Sender: FDA-Public Use
  Company Number: US-PFIZER INC-2019069531

PATIENT
  Age: 58 Year
  Sex: Female

DRUGS (4)
  1. XELJANZ XR [Suspect]
     Active Substance: TOFACITINIB CITRATE
     Indication: RHEUMATOID ARTHRITIS
     Dosage: 11 MG, DAILY (WITH OR WITHOUT FOOD SWALLOW WHOLE DO NOT CRUSH, SPLIT OR CHEW)
     Route: 048
     Dates: start: 2016
  2. METHOTREXATE. [Concomitant]
     Active Substance: METHOTREXATE
     Dosage: UNK
  3. METHOTREXATE. [Concomitant]
     Active Substance: METHOTREXATE
     Dosage: UNK (INCREASED)
  4. XELJANZ XR [Suspect]
     Active Substance: TOFACITINIB CITRATE
     Dosage: 11 MG, DAILY (WITH OR WITHOUT FOOD SWALLOW WHOLE DO NOT CRUSH, SPLIT OR CHEW)
     Route: 048
     Dates: start: 201902

REACTIONS (9)
  - Limb injury [Recovering/Resolving]
  - Condition aggravated [Recovering/Resolving]
  - Contusion [Unknown]
  - Facial bones fracture [Unknown]
  - Fall [Recovering/Resolving]
  - Oral contusion [Not Recovered/Not Resolved]
  - Swelling face [Unknown]
  - Hypoaesthesia [Unknown]
  - Hypoaesthesia oral [Not Recovered/Not Resolved]

NARRATIVE: CASE EVENT DATE: 201911
